FAERS Safety Report 4993219-2 (Version None)
Quarter: 2006Q1

REPORT INFORMATION
  Report Type: 
  Country: None (occurrence: None)
  Receive Date: 20060314
  Receipt Date: 20060120
  Transmission Date: 20060701
  Serious: Yes (Other)
  Sender: FDA-Public Use
  Company Number: BDI-007883

PATIENT
  Age: 43 Year
  Sex: Male

DRUGS (3)
  1. MULTIHANCE [Suspect]
     Indication: DEAFNESS
     Dosage: 7 ML ONCE IV
     Route: 042
     Dates: start: 20060120, end: 20060120
  2. MULTIHANCE [Suspect]
     Indication: NUCLEAR MAGNETIC RESONANCE IMAGING
     Dosage: 7 ML ONCE IV
     Route: 042
     Dates: start: 20060120, end: 20060120
  3. MULTIHANCE [Suspect]
     Indication: NUCLEAR MAGNETIC RESONANCE IMAGING BRAIN
     Dosage: 7 ML ONCE IV
     Route: 042
     Dates: start: 20060120, end: 20060120

REACTIONS (1)
  - HYPERSENSITIVITY [None]
